FAERS Safety Report 12289570 (Version 1)
Quarter: 2016Q2

REPORT INFORMATION
  Report Type: Spontaneous
  Country: US (occurrence: None)
  Receive Date: 20160420
  Receipt Date: 20160420
  Transmission Date: 20160815
  Serious: Yes (Other)
  Sender: FDA-Public Use
  Company Number: None

PATIENT
  Sex: Female
  Weight: 57.61 kg

DRUGS (6)
  1. ATORVASTATIN [Concomitant]
     Active Substance: ATORVASTATIN
  2. VITAMIN D [Concomitant]
     Active Substance: CHOLECALCIFEROL
  3. CIPROFLOXACIN. [Suspect]
     Active Substance: CIPROFLOXACIN
     Indication: DIVERTICULITIS
     Dosage: 1 PILL TWICE DAILY BY MOUTH
     Route: 048
     Dates: start: 20160217, end: 20160226
  4. VITAMIN B12 [Concomitant]
     Active Substance: CYANOCOBALAMIN
  5. CALCIUM [Concomitant]
     Active Substance: CALCIUM
  6. FISH OIL [Concomitant]
     Active Substance: FISH OIL

REACTIONS (23)
  - Dry mouth [None]
  - Dysphonia [None]
  - Suicidal ideation [None]
  - Neck pain [None]
  - Confusional state [None]
  - Insomnia [None]
  - Diarrhoea [None]
  - Nervousness [None]
  - Fatigue [None]
  - Asthenia [None]
  - Emotional disorder [None]
  - Thinking abnormal [None]
  - Anxiety [None]
  - Nausea [None]
  - Dysgeusia [None]
  - Abdominal pain upper [None]
  - Visual impairment [None]
  - Eye irritation [None]
  - Depression [None]
  - Decreased interest [None]
  - Blood urine present [None]
  - Stomatitis [None]
  - Headache [None]

NARRATIVE: CASE EVENT DATE: 20160220
